FAERS Safety Report 4603094-3 (Version None)
Quarter: 2005Q1

REPORT INFORMATION
  Report Type: 
  Country: None (occurrence: None)
  Receive Date: 20050214
  Receipt Date: 20041201
  Transmission Date: 20050727
  Serious: No
  Sender: FDA-Public Use
  Company Number: USA041285006

PATIENT
  Age: 72 Year
  Sex: Male
  Weight: 91 kg

DRUGS (2)
  1. CIALIS [Suspect]
     Dosage: 10 MG
  2. ZOCOR (SIMVASTATIN RATIOPHARM) [Concomitant]

REACTIONS (2)
  - ABDOMINAL DISTENSION [None]
  - DYSPEPSIA [None]
